FAERS Safety Report 8236315-9 (Version None)
Quarter: 2012Q1

REPORT INFORMATION
  Report Type: 
  Country: None (occurrence: None)
  Receive Date: 20120327
  Receipt Date: 20120315
  Transmission Date: 20120608
  Serious: Yes (Other)
  Sender: FDA-Public Use
  Company Number: BR-BAYER-2012-025569

PATIENT
  Age: 26 Year
  Sex: Female
  Weight: 64.853 kg

DRUGS (14)
  1. YASMIN [Suspect]
     Indication: CONTRACEPTION
     Dosage: UNK
     Route: 048
     Dates: start: 20020101
  2. YASMIN [Suspect]
     Indication: WEIGHT INCREASED
  3. DIANE [Suspect]
     Indication: HAIR DISORDER
  4. DIANE [Suspect]
     Indication: WEIGHT INCREASED
  5. THIAMINE HYDROCHLORIDE [Concomitant]
     Indication: BACK PAIN
  6. YASMIN [Suspect]
     Indication: HAIR DISORDER
  7. YASMIN [Suspect]
     Indication: SKIN DISORDER
  8. THIAMINE HYDROCHLORIDE [Concomitant]
     Indication: PAIN IN EXTREMITY
     Dosage: 1 DF, QD
     Route: 048
     Dates: start: 20120103, end: 20120202
  9. YASMIN [Suspect]
     Indication: ABDOMINAL PAIN
  10. DIANE [Suspect]
     Indication: SKIN DISORDER
     Dosage: 1 DF, QD
     Route: 048
     Dates: start: 19980101, end: 20010101
  11. NAPROXEN [Concomitant]
     Indication: BACK PAIN
  12. DIANE [Suspect]
     Indication: ABDOMINAL PAIN
  13. NAPROXEN [Concomitant]
     Indication: PAIN IN EXTREMITY
     Dosage: 1 DF, QD
     Route: 048
     Dates: start: 20120103, end: 20120202
  14. SERTRALINE HYDROCHLORIDE [Concomitant]
     Indication: PREMENSTRUAL SYNDROME
     Dosage: 1 DF, QD
     Route: 048
     Dates: start: 20110101

REACTIONS (8)
  - ERUCTATION [None]
  - DIARRHOEA [None]
  - APHAGIA [None]
  - NAUSEA [None]
  - WEIGHT INCREASED [None]
  - NO ADVERSE EVENT [None]
  - MALAISE [None]
  - ABDOMINAL DISTENSION [None]
